FAERS Safety Report 8353981-8 (Version None)
Quarter: 2012Q2

REPORT INFORMATION
  Report Type: 
  Country: None (occurrence: None)
  Receive Date: 20120511
  Receipt Date: 20120511
  Transmission Date: 20120825
  Serious: No
  Sender: FDA-Public Use
  Company Number: US-PFIZER INC-2012039391

PATIENT
  Sex: Female

DRUGS (1)
  1. CHANTIX [Suspect]
     Dosage: ONE TABLET IN THE MORNING, ONE IN THE AFTERNOON

REACTIONS (3)
  - DRUG DISPENSING ERROR [None]
  - POOR QUALITY SLEEP [None]
  - ABNORMAL DREAMS [None]
